FAERS Safety Report 9793349 (Version 1)
Quarter: 2014Q1

REPORT INFORMATION
  Report Type: Spontaneous
  Country: US (occurrence: US)
  Receive Date: 20140102
  Receipt Date: 20140102
  Transmission Date: 20141002
  Serious: Yes (Hospitalization)
  Sender: FDA-Public Use
  Company Number: US-PFIZER INC-2013374661

PATIENT
  Age: 66 Year
  Sex: Female
  Weight: 58.05 kg

DRUGS (1)
  1. LYRICA [Suspect]
     Indication: FIBROMYALGIA
     Dosage: 75MG IN THE MORNING AND 150MG IN THE NIGHT  (2X/DAY)
     Dates: start: 2010

REACTIONS (1)
  - Viral infection [Unknown]
